FAERS Safety Report 20229696 (Version 1)
Quarter: 2021Q4

REPORT INFORMATION
  Report Type: Spontaneous
  Country: CN (occurrence: None)
  Receive Date: 20211226
  Receipt Date: 20211226
  Transmission Date: 20220303
  Serious: Yes (Other)
  Sender: FDA-Public Use
  Company Number: CN-ROCHE-2981599

PATIENT
  Age: 63 Year
  Sex: Female

DRUGS (11)
  1. BEVACIZUMAB [Suspect]
     Active Substance: BEVACIZUMAB
     Indication: Metastases to liver
     Dosage: FOLFOXIRI + BEV
     Route: 065
     Dates: start: 20190731
  2. BEVACIZUMAB [Suspect]
     Active Substance: BEVACIZUMAB
     Route: 041
     Dates: start: 20201112
  3. CAPECITABINE [Suspect]
     Active Substance: CAPECITABINE
     Indication: Metastases to liver
     Dosage: FOLFOXIRI + BEV
     Route: 048
     Dates: start: 20190731, end: 20191121
  4. CAPECITABINE [Suspect]
     Active Substance: CAPECITABINE
     Dosage: 1500 MG IN THE MORNING AND 2000 MG IN THE EVENING BID
     Route: 048
     Dates: start: 20201112, end: 20210517
  5. CAPECITABINE [Suspect]
     Active Substance: CAPECITABINE
     Dosage: 1500 MG IN THE MORNING AND 2000 MG IN THE EVENING BID
     Route: 048
     Dates: start: 20210608
  6. OXALIPLATIN [Concomitant]
     Active Substance: OXALIPLATIN
     Indication: Metastases to liver
     Dosage: FOLFOXIRI + BEV
     Dates: start: 20190731, end: 20191121
  7. IRINOTECAN [Concomitant]
     Active Substance: IRINOTECAN
     Indication: Metastases to liver
     Dosage: FOLFOXIRI + BEV
     Dates: start: 20190731, end: 20191121
  8. IRINOTECAN [Concomitant]
     Active Substance: IRINOTECAN
     Dates: start: 20200218, end: 20200407
  9. FLUOROURACIL [Concomitant]
     Active Substance: FLUOROURACIL
     Indication: Metastases to liver
     Dosage: FLUOROURACIL 400 MG/M2 INTRAVENOUS DRIP D1, 2400 MG/M2 CONTINUE INTRAVENOUS INJECTION LASTING FOR 46
     Dates: start: 20200218, end: 20200407
  10. FLUOROURACIL [Concomitant]
     Active Substance: FLUOROURACIL
     Dosage: FLUOROURACIL AND LEUCOVORIN
     Dates: start: 20200421, end: 20200804
  11. LEUCOVORIN [Concomitant]
     Active Substance: LEUCOVORIN
     Indication: Metastases to liver
     Dosage: FLUOROURACIL AND LEUCOVORIN
     Dates: start: 20200421, end: 20200804

REACTIONS (3)
  - Granulocyte count decreased [Unknown]
  - White blood cell count decreased [Unknown]
  - Diarrhoea [Unknown]
